FAERS Safety Report 14498458 (Version 1)
Quarter: 2018Q1

REPORT INFORMATION
  Report Type: Spontaneous
  Country: US (occurrence: US)
  Receive Date: 20180207
  Receipt Date: 20180207
  Transmission Date: 20180509
  Serious: Yes (Hospitalization, Other)
  Sender: FDA-Public Use
  Company Number: US-ZYDUS-018966

PATIENT
  Age: 28 Year
  Sex: Male

DRUGS (1)
  1. OXYCODONE [Suspect]
     Active Substance: OXYCODONE
     Indication: SUBSTANCE USE
     Route: 048

REACTIONS (9)
  - Toxic leukoencephalopathy [Recovering/Resolving]
  - Unresponsive to stimuli [Recovering/Resolving]
  - Dystonia [Recovered/Resolved]
  - Hyperthermia [Recovering/Resolving]
  - Hypertension [Recovering/Resolving]
  - Paroxysmal sympathetic hyperactivity [Recovering/Resolving]
  - Intentional overdose [Unknown]
  - Tachycardia [Recovering/Resolving]
  - Drug abuse [Unknown]
